FAERS Safety Report 9200304 (Version 1)
Quarter: 2013Q1

REPORT INFORMATION
  Report Type: Spontaneous
  Country: RU (occurrence: RU)
  Receive Date: 20130329
  Receipt Date: 20130329
  Transmission Date: 20140127
  Serious: Yes (Hospitalization)
  Sender: FDA-Public Use
  Company Number: RU-ABBOTT-13P-251-1046960-00

PATIENT
  Age: 36 None
  Sex: Female
  Weight: 70 kg

DRUGS (3)
  1. KALETRA TABLETS 100/25 [Suspect]
     Indication: HIV INFECTION
     Route: 048
     Dates: start: 20101020, end: 201201
  2. KALETRA TABLETS 100/25 [Suspect]
     Route: 048
     Dates: start: 201202, end: 20120815
  3. COMBIVIR [Concomitant]
     Indication: HIV INFECTION

REACTIONS (7)
  - Porphyria non-acute [Recovering/Resolving]
  - Oral hairy leukoplakia [Unknown]
  - Rash [Unknown]
  - Dermatitis allergic [Unknown]
  - Rash [Unknown]
  - Rash vesicular [Unknown]
  - Skin hyperpigmentation [Unknown]
